FAERS Safety Report 16262432 (Version 1)
Quarter: 2019Q2

REPORT INFORMATION
  Report Type: Spontaneous
  Country: CN (occurrence: CN)
  Receive Date: 20190501
  Receipt Date: 20190501
  Transmission Date: 20190711
  Serious: Yes (Other)
  Sender: FDA-Public Use
  Company Number: CN-BAXTER-2019BAX008344

PATIENT
  Age: 62 Year
  Sex: Female
  Weight: 67 kg

DRUGS (12)
  1. ENDOXAN [Suspect]
     Active Substance: CYCLOPHOSPHAMIDE
     Dosage: ENDOXAN (CTX)+NS; DOSE REINTRODUCED
     Route: 041
  2. 0.9% SODIUM CHLORIDE INJECTION [Suspect]
     Active Substance: SODIUM CHLORIDE
     Dosage: FOURTH CHEMOTHERAPY; PHARMORUBICIN RD 135 MG +NS 100 ML
     Route: 041
     Dates: start: 20190315, end: 20190315
  3. PHARMORUBICIN RD [Suspect]
     Active Substance: EPIRUBICIN
     Dosage: PHARMORUBICIN RD +NS; DOSE REINTRODUCED
     Route: 041
  4. 0.9% SODIUM CHLORIDE INJECTION [Suspect]
     Active Substance: SODIUM CHLORIDE
     Dosage: FOURTH CHEMOTHERAPY; ENDOXAN (CTX) 900 MG +NS 45 ML
     Route: 041
     Dates: start: 20190315, end: 20190315
  5. ENDOXAN [Suspect]
     Active Substance: CYCLOPHOSPHAMIDE
     Indication: BREAST CANCER FEMALE
     Dosage: THREE CHEMOTHERAPIES; ENDOXAN (CTX)+NS
     Route: 041
  6. ENDOXAN [Suspect]
     Active Substance: CYCLOPHOSPHAMIDE
     Dosage: FOURTH CHEMOTHERAPY; ENDOXAN (CTX) 900 MG +NS 45ML
     Route: 041
     Dates: start: 20190315, end: 20190315
  7. 0.9% SODIUM CHLORIDE INJECTION [Suspect]
     Active Substance: SODIUM CHLORIDE
     Indication: MEDICATION DILUTION
     Dosage: THREE CHEMOTHERAPIES; ENDOXAN (CTX) + NS
     Route: 041
  8. 0.9% SODIUM CHLORIDE INJECTION [Suspect]
     Active Substance: SODIUM CHLORIDE
     Dosage: PHARMORUBICIN RD + NS; DOSE REINTRODUCED
     Route: 041
  9. PHARMORUBICIN RD [Suspect]
     Active Substance: EPIRUBICIN
     Indication: BREAST CANCER FEMALE
     Dosage: THREE CHEMOTHERAPIES; PHARMORUBICIN RD +NS
     Route: 041
  10. PHARMORUBICIN RD [Suspect]
     Active Substance: EPIRUBICIN
     Dosage: FOURTH CHEMOTHERAPY; PHARMORUBICIN RD 135 MG +NS 100ML
     Route: 041
     Dates: start: 20190315, end: 20190315
  11. 0.9% SODIUM CHLORIDE INJECTION [Suspect]
     Active Substance: SODIUM CHLORIDE
     Dosage: THREE CHEMOTHERAPIES; PHARMORUBICIN RD + NS
     Route: 041
  12. 0.9% SODIUM CHLORIDE INJECTION [Suspect]
     Active Substance: SODIUM CHLORIDE
     Dosage: ENDOXAN (CTX)+NS; DOSE REINTRODUCED
     Route: 041

REACTIONS (2)
  - Leukopenia [Recovered/Resolved]
  - Agranulocytosis [Recovered/Resolved]

NARRATIVE: CASE EVENT DATE: 20190322
